FAERS Safety Report 14791120 (Version 3)
Quarter: 2018Q3

REPORT INFORMATION
  Report Type: Spontaneous
  Country: US (occurrence: US)
  Receive Date: 20180423
  Receipt Date: 20180703
  Transmission Date: 20181010
  Serious: No
  Sender: FDA-Public Use
  Company Number: US-PFIZER INC-2018094500

PATIENT
  Age: 46 Year
  Sex: Female

DRUGS (4)
  1. NEOSAR [Concomitant]
     Active Substance: CYCLOPHOSPHAMIDE
     Indication: CHEMOTHERAPY
     Dosage: UNK
  2. DOCETAXEL. [Suspect]
     Active Substance: DOCETAXEL
     Indication: CHEMOTHERAPY
     Dosage: 20 MG, EVERY 3 WEEKS (TWELVE CYCLES)
     Dates: start: 20020829, end: 20030206
  3. DOCETAXEL. [Suspect]
     Active Substance: DOCETAXEL
     Indication: BREAST CANCER FEMALE
  4. CYCLOPHOSPHAMIDE. [Concomitant]
     Active Substance: CYCLOPHOSPHAMIDE
     Indication: CHEMOTHERAPY
     Dosage: UNK

REACTIONS (6)
  - Hair disorder [Not Recovered/Not Resolved]
  - Lacrimal disorder [Not Recovered/Not Resolved]
  - Alopecia [Not Recovered/Not Resolved]
  - Madarosis [Not Recovered/Not Resolved]
  - Hair texture abnormal [Not Recovered/Not Resolved]
  - Hair colour changes [Not Recovered/Not Resolved]

NARRATIVE: CASE EVENT DATE: 200308
